FAERS Safety Report 24955165 (Version 1)
Quarter: 2025Q1

REPORT INFORMATION
  Report Type: Spontaneous
  Country: US (occurrence: US)
  Receive Date: 20250211
  Receipt Date: 20250211
  Transmission Date: 20250408
  Serious: No
  Sender: ROCHE
  Company Number: US-ROCHE-10000197416

PATIENT
  Age: 56 Year
  Sex: Male
  Weight: 104.32 kg

DRUGS (3)
  1. XOLAIR [Suspect]
     Active Substance: OMALIZUMAB
     Indication: Urticaria
     Dosage: SELF-INJECTS AT HOME
     Route: 058
     Dates: start: 2024
  2. XOLAIR [Suspect]
     Active Substance: OMALIZUMAB
     Dosage: GIVEN IN HCP OFFICE
     Route: 058
     Dates: start: 2020, end: 2024
  3. XOLAIR [Suspect]
     Active Substance: OMALIZUMAB
     Indication: Urticaria
     Dosage: SELF-INJECTS AT HOME
     Route: 058
     Dates: start: 2024

REACTIONS (4)
  - Product dose omission issue [Unknown]
  - Urticaria [Not Recovered/Not Resolved]
  - Exposure via skin contact [Recovered/Resolved with Sequelae]
  - Needle issue [Unknown]

NARRATIVE: CASE EVENT DATE: 20250127
